FAERS Safety Report 5069707-X (Version None)
Quarter: 2006Q3

REPORT INFORMATION
  Report Type: 
  Country: None (occurrence: None)
  Receive Date: 20060731
  Receipt Date: 20060719
  Transmission Date: 20061208
  Serious: Yes (Death, Life-Threatening, Hospitalization)
  Sender: FDA-Public Use
  Company Number: 2006081329

PATIENT
  Age: 80 Year
  Sex: Female

DRUGS (8)
  1. FRAGMIN [Suspect]
     Indication: THROMBOSIS PROPHYLAXIS
     Dosage: 5000 I.U. (5000 I.U., QD), SUBCUTANEOUS
     Route: 058
     Dates: start: 20060601
  2. DILZEM [Concomitant]
  3. ALDOCTONE (SPIRONOLACTONE) [Concomitant]
  4. BERODUAL (FENOTEROL HYDROBROMIDE, IPRATROPIUM BROMIDE) [Concomitant]
  5. LASIX [Concomitant]
  6. MARCUMAR [Concomitant]
  7. ISOMONAT (ISOSORBIDE MONONITRATE) [Concomitant]
  8. LOVENOX [Concomitant]

REACTIONS (1)
  - EMBOLIC STROKE [None]
